FAERS Safety Report 5781859-2 (Version None)
Quarter: 2008Q2

REPORT INFORMATION
  Report Type: 
  Country: None (occurrence: None)
  Receive Date: 20080623
  Receipt Date: 20080620
  Transmission Date: 20081010
  Serious: Yes (Other)
  Sender: FDA-Public Use
  Company Number: A0734012A

PATIENT
  Age: 47 Year
  Sex: Female

DRUGS (1)
  1. ALLI [Suspect]
     Indication: WEIGHT LOSS DIET
     Route: 048
     Dates: start: 20071101

REACTIONS (4)
  - BREAST CALCIFICATIONS [None]
  - BREAST CANCER IN SITU [None]
  - GASTROINTESTINAL DISORDER [None]
  - RECTAL DISCHARGE [None]
